FAERS Safety Report 8053711-3 (Version None)
Quarter: 2011Q4

REPORT INFORMATION
  Report Type: 
  Country: None (occurrence: None)
  Receive Date: 20111213
  Receipt Date: 20111003
  Transmission Date: 20120403
  Serious: No
  Sender: FDA-Public Use
  Company Number: 2011SP046659

PATIENT
  Age: 35 Year
  Sex: Female

DRUGS (1)
  1. SAPHRIS [Suspect]
     Indication: MANIA

REACTIONS (1)
  - SOMNAMBULISM [None]
